FAERS Safety Report 19798791 (Version 1)
Quarter: 2021Q3

REPORT INFORMATION
  Report Type: Spontaneous
  Country: US (occurrence: US)
  Receive Date: 20210907
  Receipt Date: 20210907
  Transmission Date: 20211014
  Serious: No
  Sender: FDA-Public Use
  Company Number: US-BAYER-2021-202483

PATIENT
  Age: 18 Year
  Sex: Female

DRUGS (1)
  1. MIRENA [Suspect]
     Active Substance: LEVONORGESTREL
     Indication: MENSTRUATION IRREGULAR
     Dosage: 20 ?G, CONT
     Route: 015
     Dates: start: 20210824

REACTIONS (2)
  - Procedural pain [Not Recovered/Not Resolved]
  - Off label use of device [None]

NARRATIVE: CASE EVENT DATE: 20210824
